FAERS Safety Report 19788728 (Version 1)
Quarter: 2021Q3

REPORT INFORMATION
  Report Type: Spontaneous
  Country: US (occurrence: US)
  Receive Date: 20210904
  Receipt Date: 20210904
  Transmission Date: 20211014
  Serious: Yes (Other)
  Sender: FDA-Public Use
  Company Number: US-BRISTOL-MYERS SQUIBB COMPANY-BMS-2021-085690

PATIENT

DRUGS (2)
  1. OPDIVO [Suspect]
     Active Substance: NIVOLUMAB
     Indication: PRODUCT USED FOR UNKNOWN INDICATION
     Dosage: UNK
     Route: 065
  2. YERVOY [Suspect]
     Active Substance: IPILIMUMAB
     Indication: PRODUCT USED FOR UNKNOWN INDICATION
     Dosage: UNK
     Route: 065

REACTIONS (25)
  - Hyperhidrosis [Unknown]
  - Alopecia [Unknown]
  - Thirst [Unknown]
  - Contusion [Unknown]
  - Joint swelling [Unknown]
  - Decreased appetite [Unknown]
  - Oral herpes [Unknown]
  - Chromaturia [Unknown]
  - Fatigue [Unknown]
  - Dizziness [Unknown]
  - Constipation [Unknown]
  - Muscular weakness [Unknown]
  - Crohn^s disease [Unknown]
  - Pneumocystis jirovecii infection [Unknown]
  - Headache [Unknown]
  - Haemorrhagic diathesis [Unknown]
  - Rash [Unknown]
  - Muscle spasms [Unknown]
  - Colitis [Unknown]
  - Hepatitis [Unknown]
  - Facial paralysis [Unknown]
  - Amnesia [Unknown]
  - Mouth ulceration [Unknown]
  - Confusional state [Unknown]
  - Eyelid function disorder [Unknown]
